FAERS Safety Report 6424660-9 (Version None)
Quarter: 2009Q4

REPORT INFORMATION
  Report Type: 
  Country: None (occurrence: None)
  Receive Date: 20091030
  Receipt Date: 20091030
  Transmission Date: 20100525
  Serious: Yes (Hospitalization)
  Sender: FDA-Public Use
  Company Number: None

PATIENT
  Age: 85 Year
  Sex: Male

DRUGS (1)
  1. SALSALATE [Suspect]
     Dosage: 750 MG BID PO
     Route: 048
     Dates: start: 20040221, end: 20081022

REACTIONS (3)
  - DIZZINESS [None]
  - HEADACHE [None]
  - RENAL FAILURE ACUTE [None]
